FAERS Safety Report 11906152 (Version 2)
Quarter: 2016Q1

REPORT INFORMATION
  Report Type: Spontaneous
  Country: US (occurrence: US)
  Receive Date: 20160111
  Receipt Date: 20160113
  Transmission Date: 20160526
  Serious: No
  Sender: FDA-Public Use
  Company Number: US-BAYER-2016-005035

PATIENT
  Age: 78 Year
  Sex: Female
  Weight: 58.5 kg

DRUGS (1)
  1. ZEGERID OTC CAPSULES [Suspect]
     Active Substance: OMEPRAZOLE\SODIUM BICARBONATE
     Indication: DYSPEPSIA
     Dosage: 1 DF, QD
     Route: 048
     Dates: start: 2014

REACTIONS (4)
  - Product taste abnormal [None]
  - Product use issue [None]
  - Product quality issue [None]
  - Product use issue [None]

NARRATIVE: CASE EVENT DATE: 2014
